FAERS Safety Report 9752147 (Version 1)
Quarter: 2013Q4

REPORT INFORMATION
  Report Type: Spontaneous
  Country: US (occurrence: None)
  Receive Date: 20131212
  Receipt Date: 20131212
  Transmission Date: 20140711
  Serious: Yes (Disabling)
  Sender: FDA-Public Use
  Company Number: None

PATIENT
  Age: 33 Year
  Sex: Male
  Weight: 65.77 kg

DRUGS (3)
  1. AMLODIPINE [Suspect]
     Indication: HYPERTENSION
     Dosage: 10MG ONCE A DAY, ONCE DAILY, TAKEN BY MOUTH
     Dates: start: 20130501, end: 20131211
  2. AMLODIPINE [Suspect]
     Indication: COUGH
     Dosage: 10MG ONCE A DAY, ONCE DAILY, TAKEN BY MOUTH
     Dates: start: 20130501, end: 20131211
  3. AMLODIPINE [Suspect]
     Indication: NAUSEA
     Dosage: 10MG ONCE A DAY, ONCE DAILY, TAKEN BY MOUTH
     Dates: start: 20130501, end: 20131211

REACTIONS (2)
  - Cough [None]
  - Nausea [None]
